FAERS Safety Report 25186479 (Version 6)
Quarter: 2025Q3

REPORT INFORMATION
  Report Type: Report from Study
  Country: CA (occurrence: CA)
  Receive Date: 20250411
  Receipt Date: 20250814
  Transmission Date: 20251021
  Serious: Yes (Other)
  Sender: IPSEN BIOPHARMACEUTICALS, INC.
  Company Number: CA-IPSEN Group, Research and Development-2023-03813

PATIENT
  Age: 60 Year
  Sex: Female

DRUGS (10)
  1. LANREOTIDE ACETATE [Suspect]
     Active Substance: LANREOTIDE ACETATE
     Indication: Gastroenteropancreatic neuroendocrine tumour disease
     Dosage: DEEP SUBCUTANEOUS?AS PER POST INJECTION REPORT DATED JUL 28, 2025, #LOT 01785 EXPIRY DATE 31-JAN-2028
     Dates: start: 20200110
  2. LANREOTIDE ACETATE [Suspect]
     Active Substance: LANREOTIDE ACETATE
     Dosage: 120 MG/0.5 ML INJECTION, INTO THE UPPER EXTERNAL BUTTOCK (GLUTEUS MEDIUS)
     Dates: start: 20250110
  3. CHOLECALCIFEROL [Concomitant]
     Active Substance: CHOLECALCIFEROL
  4. VITAMIN B12 [Concomitant]
     Active Substance: CYANOCOBALAMIN
  5. MACUHEALTH [Concomitant]
  6. OMEGA 3 WOMEN [Concomitant]
  7. COENZYME Q10 [Concomitant]
     Active Substance: DIETARY SUPPLEMENT\UBIDECARENONE
  8. FAMOTIDINE [Concomitant]
     Active Substance: FAMOTIDINE
     Dosage: 40MG OD BY MOUTH
  9. METOCLOPRAMIDE [Concomitant]
     Active Substance: METOCLOPRAMIDE
     Dosage: 5MG TID, BY MOUTH
  10. APIXABAN [Concomitant]
     Active Substance: APIXABAN

REACTIONS (25)
  - Ovarian disorder [Recovered/Resolved]
  - Malignant neoplasm progression [Not Recovered/Not Resolved]
  - Meningioma benign [Not Recovered/Not Resolved]
  - Hysterectomy [Unknown]
  - Hernia [Recovering/Resolving]
  - Metastases to spine [Recovering/Resolving]
  - Back pain [Recovered/Resolved]
  - Posture abnormal [Recovering/Resolving]
  - Red blood cell count decreased [Not Recovered/Not Resolved]
  - Haemoglobin decreased [Not Recovered/Not Resolved]
  - Haematocrit decreased [Not Recovered/Not Resolved]
  - Blood 1,25-dihydroxycholecalciferol decreased [Not Recovered/Not Resolved]
  - Abdominal pain [Not Recovered/Not Resolved]
  - Arthritis [Not Recovered/Not Resolved]
  - Off label use [Unknown]
  - Gastrointestinal inflammation [Not Recovered/Not Resolved]
  - Dry mouth [Not Recovered/Not Resolved]
  - Fatigue [Not Recovered/Not Resolved]
  - Abdominal distension [Not Recovered/Not Resolved]
  - Flatulence [Not Recovered/Not Resolved]
  - Off label use [Unknown]
  - Diarrhoea [Not Recovered/Not Resolved]
  - Fatigue [Not Recovered/Not Resolved]
  - Arthralgia [Not Recovered/Not Resolved]
  - Pain [Not Recovered/Not Resolved]

NARRATIVE: CASE EVENT DATE: 20230103
